FAERS Safety Report 6275732-3 (Version None)
Quarter: 2009Q3

REPORT INFORMATION
  Report Type: 
  Country: None (occurrence: None)
  Receive Date: 20090721
  Receipt Date: 20090715
  Transmission Date: 20100115
  Serious: Yes (Other)
  Sender: FDA-Public Use
  Company Number: PHHY2009NL18691

PATIENT
  Sex: Female

DRUGS (5)
  1. SANDOSTATIN [Suspect]
     Dosage: 0.5 MG/ML, UNK
  2. LANSOPRAZOLE [Concomitant]
     Dosage: 30 MG, 2DD1 CAPSULE PER OS
     Dates: start: 20070912
  3. XYZAL [Concomitant]
     Dosage: 5 MG, 1DD1 TABLET PER OS
     Dates: start: 20040701
  4. PANZYTRAT [Concomitant]
     Dosage: 3 DD1 CAPSULE PER OS
     Dates: start: 20040701
  5. DUSPATAL [Concomitant]
     Dosage: 200 MG, 2DD 1 CAPSULE PER OS
     Dates: start: 20040615

REACTIONS (5)
  - ABNORMAL BEHAVIOUR [None]
  - CONFUSIONAL STATE [None]
  - EYE PAIN [None]
  - MUSCULAR WEAKNESS [None]
  - PARAESTHESIA [None]
